FAERS Safety Report 4693650-9 (Version None)
Quarter: 2005Q2

REPORT INFORMATION
  Report Type: 
  Country: None (occurrence: None)
  Receive Date: 20050617
  Receipt Date: 20050329
  Transmission Date: 20051028
  Serious: Yes (Hospitalization)
  Sender: FDA-Public Use
  Company Number: 2005UW04862

PATIENT
  Age: 29958 Day
  Sex: Female
  Weight: 36 kg

DRUGS (19)
  1. FASLODEX [Suspect]
     Indication: LUNG NEOPLASM MALIGNANT
     Route: 030
     Dates: start: 20050202, end: 20050302
  2. IRESSA [Suspect]
     Indication: NON-SMALL CELL LUNG CANCER
     Route: 048
     Dates: start: 20050202, end: 20050327
  3. ACETYLSALICYLIC ACID SRT [Concomitant]
  4. ACCUPRIL [Concomitant]
  5. RANITIDINE [Concomitant]
  6. PRAVACHOL [Concomitant]
  7. ATENOLOL [Concomitant]
  8. PREPARATION H [Concomitant]
  9. TYLENOL PM [Concomitant]
  10. NITROGLYCERIN [Concomitant]
  11. MULTI-VITAMIN [Concomitant]
  12. STOOL SOFTENER [Concomitant]
  13. NICOTINE [Concomitant]
  14. VICODIN [Concomitant]
  15. HYDROCODONE BITARTRATE [Concomitant]
  16. ALBUTEROL [Concomitant]
  17. SPIRIVA [Concomitant]
  18. QVAR 40 [Concomitant]
  19. VERELAN [Concomitant]

REACTIONS (15)
  - CHRONIC OBSTRUCTIVE AIRWAYS DISEASE EXACERBATED [None]
  - DEHYDRATION [None]
  - DIARRHOEA [None]
  - DYSPNOEA [None]
  - GASTROINTESTINAL HAEMORRHAGE [None]
  - HYPOXIA [None]
  - LETHARGY [None]
  - LOWER GASTROINTESTINAL HAEMORRHAGE [None]
  - ORAL INTAKE REDUCED [None]
  - POLYP [None]
  - RECTAL CANCER [None]
  - RECTAL HAEMORRHAGE [None]
  - RED BLOOD CELL COUNT DECREASED [None]
  - SOMNOLENCE [None]
  - WHEEZING [None]
